FAERS Safety Report 19083404 (Version 5)
Quarter: 2022Q1

REPORT INFORMATION
  Report Type: Spontaneous
  Country: FR (occurrence: FR)
  Receive Date: 20210401
  Receipt Date: 20220311
  Transmission Date: 20220424
  Serious: Yes (Other)
  Sender: FDA-Public Use
  Company Number: FR-GLAXOSMITHKLINE-FR2021EME042962

PATIENT
  Age: 47 Year
  Sex: Female

DRUGS (1)
  1. BENLYSTA [Suspect]
     Active Substance: BELIMUMAB
     Indication: Systemic lupus erythematosus
     Dosage: 200 MG

REACTIONS (16)
  - Pneumonia [Unknown]
  - Systemic lupus erythematosus [Not Recovered/Not Resolved]
  - Fatigue [Unknown]
  - Herpes zoster [Not Recovered/Not Resolved]
  - Pyrexia [Unknown]
  - Nausea [Unknown]
  - Sputum discoloured [Unknown]
  - Arthralgia [Unknown]
  - Peripheral swelling [Unknown]
  - Asthenia [Unknown]
  - Feeling cold [Unknown]
  - Cough [Unknown]
  - Sputum retention [Unknown]
  - Influenza like illness [Unknown]
  - Pain [Unknown]
  - Arthritis [Unknown]

NARRATIVE: CASE EVENT DATE: 20210212
